FAERS Safety Report 17086088 (Version 1)
Quarter: 2019Q4

REPORT INFORMATION
  Report Type: Spontaneous
  Country: US (occurrence: US)
  Receive Date: 20191031
  Receipt Date: 20191031
  Transmission Date: 20200122
  Serious: Yes (Hospitalization)
  Sender: FDA-Public Use
  Company Number: None

PATIENT
  Sex: Male
  Weight: 70.6 kg

DRUGS (4)
  1. CARBOPLATIN. [Suspect]
     Active Substance: CARBOPLATIN
  2. IFOSFAMIDE. [Concomitant]
     Active Substance: IFOSFAMIDE
  3. TAXOL [Concomitant]
     Active Substance: PACLITAXEL
  4. ETOPOSIDE (VP-16) [Concomitant]
     Active Substance: ETOPOSIDE

REACTIONS (1)
  - Febrile neutropenia [None]

NARRATIVE: CASE EVENT DATE: 20191027
